FAERS Safety Report 8027349-8 (Version None)
Quarter: 2012Q1

REPORT INFORMATION
  Report Type: 
  Country: None (occurrence: None)
  Receive Date: 20120105
  Receipt Date: 20120105
  Transmission Date: 20120608
  Serious: Yes (Hospitalization)
  Sender: FDA-Public Use
  Company Number: None

PATIENT
  Sex: Male
  Weight: 101.6057 kg

DRUGS (10)
  1. OXALIPLATIN [Suspect]
     Indication: OESOPHAGEAL CARCINOMA
     Dosage: 186MG IV Q 14 DAYS
     Route: 042
     Dates: start: 20111220
  2. LIDOCAINE [Concomitant]
  3. TENORMIN [Concomitant]
  4. XANAX [Concomitant]
  5. ROXICET [Concomitant]
  6. FLUOROURACIL [Suspect]
     Indication: OESOPHAGEAL CARCINOMA
     Dosage: 876 MG IVP  5256 MG CI Q 14 DAYS
     Dates: start: 20111220
  7. PERCOCET [Concomitant]
  8. LISINOPRIL [Concomitant]
  9. NEURONTIN [Concomitant]
  10. NEXIUM [Concomitant]

REACTIONS (4)
  - ABDOMINAL PAIN [None]
  - NAUSEA [None]
  - VOMITING [None]
  - DRUG DEPENDENCE [None]
